FAERS Safety Report 5938765-X (Version None)
Quarter: 2008Q4

REPORT INFORMATION
  Report Type: 
  Country: None (occurrence: None)
  Receive Date: 20081103
  Receipt Date: 20081002
  Transmission Date: 20090506
  Serious: No
  Sender: FDA-Public Use
  Company Number: US-BAYER-200824406NA

PATIENT
  Sex: Female

DRUGS (1)
  1. MIRENA [Suspect]
     Indication: CONTRACEPTION
     Route: 015

REACTIONS (4)
  - HYPOAESTHESIA [None]
  - MUSCLE TWITCHING [None]
  - PRESYNCOPE [None]
  - PROCEDURAL PAIN [None]
